FAERS Safety Report 8535871-0 (Version None)
Quarter: 2012Q3

REPORT INFORMATION
  Report Type: 
  Country: None (occurrence: None)
  Receive Date: 20120725
  Receipt Date: 20120717
  Transmission Date: 20120928
  Serious: Yes (Other)
  Sender: FDA-Public Use
  Company Number: DZ-GE HEALTHCARE MEDICAL DIAGNOSTICS-OMPQ-NO-1205S-0519

PATIENT
  Age: 62 Year
  Sex: Male
  Weight: 70 kg

DRUGS (1)
  1. OMNIPAQUE 140 [Suspect]
     Indication: MYOCARDIAL INFARCTION
     Route: 013
     Dates: start: 20120511, end: 20120511

REACTIONS (2)
  - BLOOD UREA INCREASED [None]
  - BLOOD CREATININE INCREASED [None]
